FAERS Safety Report 16154537 (Version 1)
Quarter: 2019Q2

REPORT INFORMATION
  Report Type: Spontaneous
  Country: US (occurrence: US)
  Receive Date: 20190403
  Receipt Date: 20190403
  Transmission Date: 20190711
  Serious: No
  Sender: FDA-Public Use
  Company Number: US-TEVA-2019-US-1028882

PATIENT
  Sex: Female

DRUGS (1)
  1. LORAZEPAM WATSON [Suspect]
     Active Substance: LORAZEPAM
     Indication: ANXIETY
     Dosage: 1 TABLET / DAY
     Dates: start: 20190304, end: 20190318

REACTIONS (6)
  - Hypertension [Unknown]
  - Drug ineffective [Unknown]
  - Insomnia [Unknown]
  - Anxiety [Unknown]
  - Alcohol use disorder [Unknown]
  - Heart rate increased [Unknown]

NARRATIVE: CASE EVENT DATE: 201803
